FAERS Safety Report 7767243-0 (Version None)
Quarter: 2011Q3

REPORT INFORMATION
  Report Type: 
  Country: None (occurrence: None)
  Receive Date: 20110922
  Receipt Date: 20100203
  Transmission Date: 20111222
  Serious: No
  Sender: FDA-Public Use
  Company Number: US-ASTRAZENECA-2010SE53807

PATIENT
  Age: 24191 Day
  Sex: Female
  Weight: 126.6 kg

DRUGS (8)
  1. SYNTHROID [Concomitant]
     Indication: THYROID DISORDER
     Route: 048
     Dates: start: 20080723
  2. FELDENE [Concomitant]
     Indication: MUSCULOSKELETAL PAIN
     Route: 048
     Dates: start: 20080702
  3. SEROQUEL [Suspect]
     Dosage: 100 MG TAKE ONE IN THE MORNING AND TWO AT BEDTIME
     Route: 048
     Dates: start: 20060101
  4. GLUCOPHAGE [Concomitant]
     Indication: DIABETES MELLITUS
     Route: 048
     Dates: start: 20080723
  5. LEXAPRO [Concomitant]
     Route: 048
     Dates: start: 20080702
  6. TENORETIC 50 [Concomitant]
     Dosage: 50-25 MG TAKE ONE TABLET DAILY
     Route: 048
     Dates: start: 20080616
  7. PREMARIN [Concomitant]
     Route: 048
     Dates: start: 20080616
  8. LORTAB [Concomitant]
     Indication: PAIN
     Dosage: 5-500 MG EVERY 4-6 HOURS AS NEEDED
     Route: 048
     Dates: start: 20080702

REACTIONS (4)
  - DIABETES MELLITUS [None]
  - ARTHRALGIA [None]
  - HYPOTHYROIDISM [None]
  - PYOGENIC GRANULOMA [None]
